FAERS Safety Report 4866669-2 (Version None)
Quarter: 2005Q4

REPORT INFORMATION
  Report Type: 
  Country: None (occurrence: None)
  Receive Date: 20051221
  Receipt Date: 20051212
  Transmission Date: 20060501
  Serious: Yes (Other)
  Sender: FDA-Public Use
  Company Number: JP-2005-026476

PATIENT
  Age: 28 Year
  Sex: Female

DRUGS (1)
  1. MAGNEVIST [Suspect]
     Indication: NUCLEAR MAGNETIC RESONANCE IMAGING
     Dosage: 20 ML, 1 DOSE, INTRAVENOUS
     Route: 042
     Dates: start: 20051206, end: 20051206

REACTIONS (3)
  - COMPLEX REGIONAL PAIN SYNDROME [None]
  - OEDEMA PERIPHERAL [None]
  - PAIN [None]
